FAERS Safety Report 4467043-3 (Version None)
Quarter: 2004Q4

REPORT INFORMATION
  Report Type: 
  Country: None (occurrence: None)
  Receive Date: 20041004
  Receipt Date: 20010916
  Transmission Date: 20050328
  Serious: Yes (Hospitalization, Other)
  Sender: FDA-Public Use
  Company Number: DSA_25008_2004

PATIENT
  Age: 50 Year
  Sex: Male

DRUGS (34)
  1. DILTIAZEM [Suspect]
     Indication: ILL-DEFINED DISORDER
     Dosage: DF
  2. TIKOSYN [Suspect]
     Indication: ARRHYTHMIA
     Dosage: 500 MG BID
     Dates: start: 20040301
  3. TIKOSYN [Suspect]
     Indication: ARRHYTHMIA
     Dosage: 500 MG BID
     Dates: end: 20040901
  4. AMLODIPINE [Suspect]
     Dosage: DF
  5. FENTANYL [Suspect]
     Indication: ILL-DEFINED DISORDER
     Dosage: DF
  6. LISINOPRIL [Suspect]
     Indication: ILL-DEFINED DISORDER
     Dosage: DF
  7. ALBUMIN (HUMAN) [Suspect]
     Indication: ILL-DEFINED DISORDER
     Dosage: DF
  8. PREDNISONE [Concomitant]
  9. PROTONIX [Concomitant]
  10. GUAIFENESIN [Concomitant]
  11. TEMAZEPAM [Concomitant]
  12. SINGULAIR    DIECKMANN [Concomitant]
  13. XOPENEX [Concomitant]
  14. ZITHROMAX [Concomitant]
  15. DOCUSATE SODIUM [Concomitant]
  16. AMIODARONE [Concomitant]
  17. IRBESARTAN [Concomitant]
  18. FUROSEMIDE [Concomitant]
  19. ESMOLOL [Concomitant]
  20. WARFARIN SODIUM [Concomitant]
  21. METHYLPREDNISOLONE [Concomitant]
  22. BUDESONIDE [Concomitant]
  23. LORAZEPAM [Concomitant]
  24. METRONIDAZOLE [Concomitant]
  25. VANCOMYCIN [Concomitant]
  26. METOCLOPRAMIDE [Concomitant]
  27. MAGNESIUM HYDROXIDE TAB [Concomitant]
  28. BISACODYL [Concomitant]
  29. AMIKACIN [Concomitant]
  30. AZTREONAM [Concomitant]
  31. FILGRASTIM [Concomitant]
  32. POTASSIUM [Concomitant]
  33. MIDAZOLAM HCL [Concomitant]
  34. INSULIN [Concomitant]

REACTIONS (14)
  - ABNORMAL BEHAVIOUR [None]
  - BLOOD GLUCOSE INCREASED [None]
  - BLOOD PRESSURE FLUCTUATION [None]
  - BLOOD URINE [None]
  - CHEST PAIN [None]
  - CHRONIC OBSTRUCTIVE AIRWAYS DISEASE [None]
  - DYSPNOEA [None]
  - FLATULENCE [None]
  - GASTRIC DISORDER [None]
  - HALLUCINATION, VISUAL [None]
  - HEART RATE INCREASED [None]
  - HERPES ZOSTER [None]
  - LABORATORY TEST ABNORMAL [None]
  - SWELLING [None]
